FAERS Safety Report 8027971-9 (Version None)
Quarter: 2012Q1

REPORT INFORMATION
  Report Type: 
  Country: None (occurrence: None)
  Receive Date: 20120106
  Receipt Date: 20111228
  Transmission Date: 20120608
  Serious: Yes (Other)
  Sender: FDA-Public Use
  Company Number: JP-ELI_LILLY_AND_COMPANY-JP201108006269

PATIENT
  Age: 53 Year
  Sex: Female

DRUGS (2)
  1. AMERGE [Concomitant]
     Indication: MIGRAINE
     Dosage: UNK
     Route: 048
  2. FORTEO [Suspect]
     Indication: OSTEOPOROSIS
     Dosage: UNK
     Route: 058
     Dates: start: 20110803, end: 20110813

REACTIONS (7)
  - HYPOAESTHESIA [None]
  - FEELING ABNORMAL [None]
  - HEADACHE [None]
  - DECREASED APPETITE [None]
  - TREMOR [None]
  - DYSPNOEA [None]
  - NAUSEA [None]
